FAERS Safety Report 13374376 (Version 1)
Quarter: 2017Q1

REPORT INFORMATION
  Report Type: Spontaneous
  Country: US (occurrence: US)
  Receive Date: 20170327
  Receipt Date: 20170327
  Transmission Date: 20170429
  Serious: No
  Sender: FDA-Public Use
  Company Number: US-FRESENIUS KABI-FK201702497

PATIENT
  Age: 78 Year
  Sex: Male

DRUGS (1)
  1. CYANOCOBALAMIN INJECTION, USP [Suspect]
     Active Substance: CYANOCOBALAMIN
     Indication: VITAMIN B12 DEFICIENCY
     Route: 030
     Dates: start: 201701, end: 201702

REACTIONS (3)
  - Hiccups [Recovered/Resolved]
  - Insomnia [Unknown]
  - Fatigue [Recovered/Resolved]

NARRATIVE: CASE EVENT DATE: 2017
